FAERS Safety Report 6434334-6 (Version None)
Quarter: 2009Q4

REPORT INFORMATION
  Report Type: 
  Country: None (occurrence: None)
  Receive Date: 20091110
  Receipt Date: 20090427
  Transmission Date: 20100525
  Serious: No
  Sender: FDA-Public Use
  Company Number: US-ASTRAZENECA-2009SE08917

PATIENT
  Age: 83 Year
  Sex: Female

DRUGS (6)
  1. PRILOSEC OTC [Suspect]
     Dosage: 1 TABLET, 1 /DAY FOR 11 DAYS
     Route: 048
     Dates: start: 20090418, end: 20090429
  2. ANTIHYPERTENSIVES [Concomitant]
     Dosage: UNKNOWN
  3. AMBIEN CR [Concomitant]
     Indication: INSOMNIA
     Dosage: UNKNOWN
  4. DIAZEPAM [Concomitant]
     Indication: INSOMNIA
     Dosage: UNKNOWN
  5. ANTIDEPRESSANTS [Concomitant]
     Dosage: UNKNOWN
  6. THYROID THERAPY [Concomitant]
     Dosage: UNKNOWN

REACTIONS (5)
  - FATIGUE [None]
  - HEADACHE [None]
  - LABELLED DRUG-DRUG INTERACTION MEDICATION ERROR [None]
  - LETHARGY [None]
  - NAUSEA [None]
